FAERS Safety Report 8558875 (Version 5)
Quarter: 2013Q1

REPORT INFORMATION
  Report Type: Spontaneous
  Country: CA (occurrence: CA)
  Receive Date: 20120511
  Receipt Date: 20130304
  Transmission Date: 20140127
  Serious: Yes (Death, Other)
  Sender: FDA-Public Use
  Company Number: PHHY2012CA005407

PATIENT
  Sex: Female

DRUGS (5)
  1. SANDOSTATIN LAR [Suspect]
     Indication: CARCINOID TUMOUR OF THE GASTROINTESTINAL TRACT
     Dosage: 30 MG, ONCE A MONTH
     Route: 030
     Dates: start: 20111122
  2. SANDOSTATIN LAR [Suspect]
     Dosage: 40 MG, TIW (EVERY 3 WEEKS)
     Route: 030
     Dates: start: 20111122
  3. SANDOSTATIN LAR [Suspect]
     Dosage: 30 MG, EVERY THREE WEEKS
     Route: 030
  4. SANDOSTATIN LAR [Suspect]
     Dosage: 60 MG, EVERY THREE WEEKS
     Route: 030
     Dates: end: 20130219
  5. ANTICOAGULANTS [Concomitant]

REACTIONS (8)
  - Death [Fatal]
  - Hepatic cancer [Unknown]
  - Second primary malignancy [Unknown]
  - Injection site haemorrhage [Unknown]
  - International normalised ratio increased [Unknown]
  - Emotional distress [Unknown]
  - Frustration [Unknown]
  - Injection site inflammation [Unknown]
